FAERS Safety Report 16640879 (Version 2)
Quarter: 2019Q3

REPORT INFORMATION
  Report Type: Report from Study
  Country: IT (occurrence: IT)
  Receive Date: 20190729
  Receipt Date: 20190903
  Transmission Date: 20191004
  Serious: Yes (Other)
  Sender: FDA-Public Use
  Company Number: IT-ROCHE-2363759

PATIENT
  Age: 71 Year
  Sex: Female

DRUGS (2)
  1. MYSOLINE [Suspect]
     Active Substance: PRIMIDONE
     Indication: PARTIAL SEIZURES
     Route: 048
     Dates: start: 20190524, end: 20190524
  2. CLONAZEPAM. [Suspect]
     Active Substance: CLONAZEPAM
     Indication: PARTIAL SEIZURES
     Route: 048
     Dates: start: 20190525, end: 20190525

REACTIONS (3)
  - Dizziness [Recovering/Resolving]
  - Sopor [Recovering/Resolving]
  - Nausea [Recovering/Resolving]

NARRATIVE: CASE EVENT DATE: 20190525
